FAERS Safety Report 5157542-3 (Version None)
Quarter: 2006Q4

REPORT INFORMATION
  Report Type: 
  Country: None (occurrence: None)
  Receive Date: 20061127
  Receipt Date: 20061115
  Transmission Date: 20070319
  Serious: Yes (Other)
  Sender: FDA-Public Use
  Company Number: FR-GLAXOSMITHKLINE-B0447645A

PATIENT
  Sex: Male

DRUGS (1)
  1. ADARTREL [Suspect]
     Indication: RESTLESS LEGS SYNDROME
     Route: 048
     Dates: start: 20051101, end: 20061001

REACTIONS (6)
  - ABDOMINAL PAIN [None]
  - CHOLELITHIASIS [None]
  - GAMMA-GLUTAMYLTRANSFERASE INCREASED [None]
  - HALLUCINATION [None]
  - INSOMNIA [None]
  - LIVER FUNCTION TEST ABNORMAL [None]
